FAERS Safety Report 16395420 (Version 1)
Quarter: 2019Q2

REPORT INFORMATION
  Report Type: Spontaneous
  Country: DE (occurrence: DE)
  Receive Date: 20190605
  Receipt Date: 20190605
  Transmission Date: 20190711
  Serious: Yes (Other)
  Sender: FDA-Public Use
  Company Number: DE-DSJP-DSE-2019-119543

PATIENT

DRUGS (7)
  1. RAMIPRIL. [Concomitant]
     Active Substance: RAMIPRIL
     Indication: PRODUCT USED FOR UNKNOWN INDICATION
     Dosage: UNK UNK, QD
     Dates: end: 20190408
  2. ALLOPURINOL. [Concomitant]
     Active Substance: ALLOPURINOL
     Indication: PRODUCT USED FOR UNKNOWN INDICATION
     Dosage: UNK
     Dates: end: 20190401
  3. DICLOFENAC [Concomitant]
     Active Substance: DICLOFENAC
     Indication: GOUT
  4. SPIRONOLACTON [Concomitant]
     Active Substance: SPIRONOLACTONE
     Indication: GOUT
     Dosage: UNK
     Dates: end: 20190301
  5. LIXIANA [Suspect]
     Active Substance: EDOXABAN TOSYLATE
     Dosage: UNK
     Route: 048
     Dates: start: 20190521
  6. LIXIANA [Suspect]
     Active Substance: EDOXABAN TOSYLATE
     Indication: ATRIAL FIBRILLATION
     Dosage: 60 MG, QD
     Route: 048
     Dates: end: 20190413
  7. BISOPROLOL [Concomitant]
     Active Substance: BISOPROLOL
     Indication: GOUT
     Dosage: UNK
     Dates: end: 20190401

REACTIONS (10)
  - Skin discolouration [Recovered/Resolved]
  - Skin discolouration [Unknown]
  - Oedema peripheral [Recovered/Resolved]
  - Gout [Unknown]
  - Erythema [Unknown]
  - Pain in extremity [Unknown]
  - Pain in extremity [Unknown]
  - Gout [Unknown]
  - Muscular weakness [Unknown]
  - Paraesthesia [Unknown]

NARRATIVE: CASE EVENT DATE: 20190301
